FAERS Safety Report 15035515 (Version 2)
Quarter: 2018Q3

REPORT INFORMATION
  Report Type: Spontaneous
  Country: US (occurrence: US)
  Receive Date: 20180620
  Receipt Date: 20180713
  Transmission Date: 20181010
  Serious: No
  Sender: FDA-Public Use
  Company Number: US-009507513-1806USA007568

PATIENT
  Age: 19 Year
  Sex: Female
  Weight: 86.18 kg

DRUGS (1)
  1. NEXPLANON [Suspect]
     Active Substance: ETONOGESTREL
     Indication: CONTRACEPTION
     Dosage: 3 YEARS, LEFT ARM
     Route: 059
     Dates: start: 20150608

REACTIONS (4)
  - Menstruation delayed [Unknown]
  - Vaginal haemorrhage [Unknown]
  - Syncope [Recovering/Resolving]
  - Incorrect drug administration duration [Unknown]

NARRATIVE: CASE EVENT DATE: 2018
